FAERS Safety Report 15367189 (Version 1)
Quarter: 2018Q3

REPORT INFORMATION
  Report Type: Spontaneous
  Country: US (occurrence: US)
  Receive Date: 20180910
  Receipt Date: 20180910
  Transmission Date: 20181010
  Serious: No
  Sender: FDA-Public Use
  Company Number: US-ALLERGAN-1772220US

PATIENT
  Sex: Male

DRUGS (6)
  1. BENTYL [Concomitant]
     Active Substance: DICYCLOMINE HYDROCHLORIDE
     Indication: ABDOMINAL PAIN
  2. FLEXERIL [Concomitant]
     Active Substance: CYCLOBENZAPRINE HYDROCHLORIDE
     Indication: NECK PAIN
  3. CARAFATE [Suspect]
     Active Substance: SUCRALFATE
     Indication: ABDOMINAL PAIN
     Dosage: 1 G, QID
     Route: 048
  4. CARAFATE [Suspect]
     Active Substance: SUCRALFATE
     Indication: DYSPEPSIA
  5. TRAMADOL. [Concomitant]
     Active Substance: TRAMADOL
     Indication: ABDOMINAL PAIN
  6. SEROQUEL [Concomitant]
     Active Substance: QUETIAPINE FUMARATE

REACTIONS (2)
  - Adverse event [Unknown]
  - Off label use [Unknown]
